FAERS Safety Report 5360192-7 (Version None)
Quarter: 2007Q2

REPORT INFORMATION
  Report Type: 
  Country: None (occurrence: None)
  Receive Date: 20070618
  Receipt Date: 20070606
  Transmission Date: 20071010
  Serious: Yes (Other)
  Sender: FDA-Public Use
  Company Number: PHHO2007BE09688

PATIENT
  Age: 61 Year
  Sex: Male

DRUGS (3)
  1. ZOLEDRONATE [Suspect]
     Indication: METASTASES TO BONE
     Dosage: 4MG EVERY 3-4 WEEKS
     Route: 042
     Dates: start: 20040921, end: 20070522
  2. CALCIUM CHLORIDE [Concomitant]
  3. VITAMIN D [Concomitant]

REACTIONS (2)
  - OSTEONECROSIS [None]
  - PAIN [None]
